FAERS Safety Report 11722094 (Version 2)
Quarter: 2015Q4

REPORT INFORMATION
  Report Type: Spontaneous
  Country: US (occurrence: US)
  Receive Date: 20151111
  Receipt Date: 20151231
  Transmission Date: 20160304
  Serious: Yes (Hospitalization)
  Sender: FDA-Public Use
  Company Number: US-JNJFOC-20151023901

PATIENT
  Age: 81 Year
  Sex: Female

DRUGS (14)
  1. HYDROCHLOROTHIAZIDE. [Concomitant]
     Active Substance: HYDROCHLOROTHIAZIDE
     Indication: HYPERTENSION
     Route: 065
  2. LIPITOR [Concomitant]
     Active Substance: ATORVASTATIN CALCIUM
     Indication: HYPERLIPIDAEMIA
     Route: 065
  3. TOPROL XL [Concomitant]
     Active Substance: METOPROLOL SUCCINATE
     Indication: HYPERTENSION
     Route: 065
  4. MAGNESIUM [Concomitant]
     Active Substance: MAGNESIUM
     Indication: PRODUCT USED FOR UNKNOWN INDICATION
     Route: 065
  5. XARELTO [Suspect]
     Active Substance: RIVAROXABAN
     Indication: CEREBROVASCULAR ACCIDENT PROPHYLAXIS
     Route: 048
     Dates: start: 20130730, end: 20140803
  6. NAMENDA [Concomitant]
     Active Substance: MEMANTINE HYDROCHLORIDE
     Indication: DEMENTIA
     Route: 065
  7. POTASSIUM [Concomitant]
     Active Substance: POTASSIUM
     Indication: PRODUCT USED FOR UNKNOWN INDICATION
     Route: 065
  8. XARELTO [Suspect]
     Active Substance: RIVAROXABAN
     Indication: ATRIAL FIBRILLATION
     Route: 048
     Dates: start: 20130730, end: 20140803
  9. LOVENOX [Suspect]
     Active Substance: ENOXAPARIN SODIUM
     Indication: DEEP VEIN THROMBOSIS
     Route: 065
  10. XARELTO [Suspect]
     Active Substance: RIVAROXABAN
     Indication: THROMBOSIS PROPHYLAXIS
     Route: 048
     Dates: start: 20130730, end: 20140803
  11. ASPIRIN. [Suspect]
     Active Substance: ASPIRIN
     Indication: PRODUCT USED FOR UNKNOWN INDICATION
     Route: 065
  12. FLECAINIDE [Concomitant]
     Active Substance: FLECAINIDE
     Indication: ATRIAL FIBRILLATION
     Route: 065
  13. HYDROCHLOROTHIAZIDE. [Concomitant]
     Active Substance: HYDROCHLOROTHIAZIDE
     Indication: RENAL FAILURE
     Route: 065
  14. LEVOTHYROXINE. [Concomitant]
     Active Substance: LEVOTHYROXINE
     Indication: PRODUCT USED FOR UNKNOWN INDICATION
     Route: 065

REACTIONS (1)
  - Haemorrhoidal haemorrhage [Recovered/Resolved]

NARRATIVE: CASE EVENT DATE: 201311
